FAERS Safety Report 12184464 (Version 1)
Quarter: 2016Q1

REPORT INFORMATION
  Report Type: Spontaneous
  Country: IL (occurrence: IL)
  Receive Date: 20160316
  Receipt Date: 20160316
  Transmission Date: 20160526
  Serious: Yes (Death, Other)
  Sender: FDA-Public Use
  Company Number: IL-ASPEN PHARMA TRADING LIMITED US-AG-2016-001036

PATIENT
  Age: 9 Month
  Sex: Male

DRUGS (4)
  1. BUSULFAN [Suspect]
     Active Substance: BUSULFAN
     Indication: BONE MARROW CONDITIONING REGIMEN
     Route: 065
  2. ALEMTUZUMAB [Suspect]
     Active Substance: ALEMTUZUMAB
     Indication: BONE MARROW CONDITIONING REGIMEN
     Route: 065
  3. MELPHALAN [Suspect]
     Active Substance: MELPHALAN
     Indication: BONE MARROW CONDITIONING REGIMEN
     Route: 065
  4. FLUDARABINE [Suspect]
     Active Substance: FLUDARABINE PHOSPHATE
     Indication: BONE MARROW CONDITIONING REGIMEN
     Route: 065

REACTIONS (5)
  - Tooth infection [Not Recovered/Not Resolved]
  - Systemic candida [Not Recovered/Not Resolved]
  - Hepatic failure [Not Recovered/Not Resolved]
  - Multiple organ dysfunction syndrome [Fatal]
  - Cytomegalovirus viraemia [Not Recovered/Not Resolved]
